FAERS Safety Report 5147682-7 (Version None)
Quarter: 2006Q4

REPORT INFORMATION
  Report Type: 
  Country: None (occurrence: None)
  Receive Date: 20061108
  Receipt Date: 20061108
  Transmission Date: 20070319
  Serious: Yes (Life-Threatening, Hospitalization)
  Sender: FDA-Public Use
  Company Number: None

PATIENT
  Age: 76 Year
  Sex: Male
  Weight: 95.2554 kg

DRUGS (1)
  1. REMICADE [Suspect]
     Indication: RHEUMATOID ARTHRITIS
     Dosage: INFUSED AT DOCTOR OFFICE    EVERY 2 TO 4 WKS ?
     Dates: start: 20030101, end: 20040101

REACTIONS (9)
  - EAR INFECTION [None]
  - HERPES ZOSTER [None]
  - INFLUENZA [None]
  - NASOPHARYNGITIS [None]
  - NEUROPATHY [None]
  - NON-HODGKIN'S LYMPHOMA [None]
  - PLATELET COUNT DECREASED [None]
  - PNEUMONIA [None]
  - SPLEEN DISORDER [None]
